FAERS Safety Report 15963287 (Version 1)
Quarter: 2019Q1

REPORT INFORMATION
  Report Type: Spontaneous
  Country: DE (occurrence: DE)
  Receive Date: 20190214
  Receipt Date: 20190214
  Transmission Date: 20190417
  Serious: Yes (Hospitalization, Other)
  Sender: FDA-Public Use
  Company Number: DE-MYLANLABS-2019M1012687

PATIENT
  Sex: Female
  Weight: 2.9 kg

DRUGS (1)
  1. IBUPROFEN. [Suspect]
     Active Substance: IBUPROFEN
     Indication: HEADACHE
     Dosage: UNK
     Route: 064

REACTIONS (8)
  - Ductus arteriosus premature closure [Unknown]
  - Neonatal cardiac failure [Recovered/Resolved]
  - Premature baby [Recovered/Resolved]
  - Cardiac hypertrophy [Not Recovered/Not Resolved]
  - Tricuspid valve incompetence [Unknown]
  - Maternal exposure timing unspecified [Recovered/Resolved]
  - Pulmonary valve incompetence [Unknown]
  - Foetal exposure during pregnancy [Recovered/Resolved]
